FAERS Safety Report 7881180-2 (Version None)
Quarter: 2011Q4

REPORT INFORMATION
  Report Type: 
  Country: None (occurrence: None)
  Receive Date: 20111101
  Receipt Date: 20110531
  Transmission Date: 20120403
  Serious: No
  Sender: FDA-Public Use
  Company Number: US-AMGEN-USASP2011019309

PATIENT
  Age: 7 Year
  Sex: Female
  Weight: 23.02 kg

DRUGS (3)
  1. METHOTREXATE SODIUM [Concomitant]
  2. FOLIC ACID [Concomitant]
  3. ENBREL [Suspect]
     Indication: JUVENILE ARTHRITIS
     Dosage: 25 MG, QWK
     Dates: start: 20110217

REACTIONS (8)
  - VIRAL INFECTION [None]
  - NAUSEA [None]
  - MOOD ALTERED [None]
  - OROPHARYNGEAL PAIN [None]
  - ABDOMINAL PAIN UPPER [None]
  - PYREXIA [None]
  - DIARRHOEA [None]
  - VOMITING [None]
